FAERS Safety Report 8189185-1 (Version None)
Quarter: 2012Q1

REPORT INFORMATION
  Report Type: 
  Country: None (occurrence: None)
  Receive Date: 20120306
  Receipt Date: 20120306
  Transmission Date: 20120608
  Serious: No
  Sender: FDA-Public Use
  Company Number: None

PATIENT
  Sex: Female
  Weight: 44.4525 kg

DRUGS (1)
  1. COUMADIN [Suspect]
     Dosage: 4 MG EVERY DAY ORAL
     Route: 048

REACTIONS (14)
  - UNEVALUABLE EVENT [None]
  - LIP DISORDER [None]
  - EYE DISORDER [None]
  - EAR DISORDER [None]
  - NAIL DISORDER [None]
  - DIZZINESS [None]
  - FATIGUE [None]
  - POST PROCEDURAL HAEMORRHAGE [None]
  - PROCEDURAL PAIN [None]
  - DYSPHONIA [None]
  - ACNE [None]
  - BACK DISORDER [None]
  - POST PROCEDURAL DISCOMFORT [None]
  - NAUSEA [None]
